FAERS Safety Report 16790250 (Version 1)
Quarter: 2019Q3

REPORT INFORMATION
  Report Type: Spontaneous
  Country: US (occurrence: US)
  Receive Date: 20190719
  Receipt Date: 20190719
  Transmission Date: 20191005
  Serious: Yes (Other)
  Sender: FDA-Public Use
  Company Number: None

PATIENT
  Age: 57 Year
  Sex: Female
  Weight: 103.87 kg

DRUGS (12)
  1. CLARITIN [Concomitant]
     Active Substance: LORATADINE
  2. ZETIA [Concomitant]
     Active Substance: EZETIMIBE
  3. FLONASE [Concomitant]
     Active Substance: FLUTICASONE PROPIONATE
  4. ALLIPURINOL [Concomitant]
  5. OZEMPIC [Concomitant]
     Active Substance: SEMAGLUTIDE
  6. BYDUREON BCISE [Suspect]
     Active Substance: EXENATIDE
     Indication: DIABETES MELLITUS
     Route: 058
     Dates: start: 20190606, end: 20190627
  7. ATENOLOL/CHLORITHALIDONE [Concomitant]
  8. LISINIPRIL [Concomitant]
     Active Substance: LISINOPRIL
  9. FISH OIL [Concomitant]
     Active Substance: FISH OIL
  10. POTASSIUM [Concomitant]
     Active Substance: POTASSIUM
  11. FUROSEMIDE. [Concomitant]
     Active Substance: FUROSEMIDE
  12. PIOGLITAZONE/METFORMIN [Concomitant]

REACTIONS (3)
  - Injection site pruritus [None]
  - Injection site inflammation [None]
  - Injection site erythema [None]

NARRATIVE: CASE EVENT DATE: 20190606
